FAERS Safety Report 25617613 (Version 3)
Quarter: 2025Q3

REPORT INFORMATION
  Report Type: Spontaneous
  Country: EU (occurrence: EU)
  Receive Date: 20250729
  Receipt Date: 20250807
  Transmission Date: 20251021
  Serious: Yes (Death, Hospitalization, Other)
  Sender: SANOFI AVENTIS
  Company Number: EU-BIOVITRUM-2025-ES-010340

PATIENT
  Age: 54 Year
  Sex: Male

DRUGS (2)
  1. ELOCTA [Suspect]
     Active Substance: EFMOROCTOCOG ALFA
     Indication: Factor VIII deficiency
     Dosage: 4000 IU, BID ADMINISTERED FOR BLEEDING AFTER BLADDER
     Route: 065
     Dates: start: 202506
  2. ELOCTA [Suspect]
     Active Substance: EFMOROCTOCOG ALFA
     Indication: Factor VIII deficiency
     Dosage: 4000 IU, BID ADMINISTERED FOR BLEEDING AFTER BLADDER
     Route: 065
     Dates: start: 202506

REACTIONS (2)
  - Suicide attempt [Fatal]
  - Hypoxic-ischaemic encephalopathy [Fatal]

NARRATIVE: CASE EVENT DATE: 20250601
